FAERS Safety Report 17840331 (Version 1)
Quarter: 2020Q2

REPORT INFORMATION
  Report Type: Spontaneous
  Country: US (occurrence: US)
  Receive Date: 20200529
  Receipt Date: 20200529
  Transmission Date: 20200714
  Serious: No
  Sender: FDA-Public Use
  Company Number: US-INDIVIOR US-INDV-124404-2020

PATIENT
  Age: 56 Year
  Sex: Female

DRUGS (1)
  1. PERSERIS [Suspect]
     Active Substance: RISPERIDONE
     Indication: SCHIZOPHRENIA
     Dosage: 90 MILLIGRAM, QMO
     Route: 058
     Dates: start: 201911

REACTIONS (1)
  - Injection site erythema [Not Recovered/Not Resolved]
